FAERS Safety Report 9111961 (Version 1)
Quarter: 2013Q1

REPORT INFORMATION
  Report Type: Spontaneous
  Country: US (occurrence: US)
  Receive Date: 20130219
  Receipt Date: 20130219
  Transmission Date: 20140127
  Serious: No
  Sender: FDA-Public Use
  Company Number: US-BRISTOL-MYERS SQUIBB COMPANY-16671950

PATIENT
  Age: 48 Year
  Sex: Female
  Weight: 122.45 kg

DRUGS (9)
  1. ORENCIA [Suspect]
     Indication: RHEUMATOID ARTHRITIS
     Route: 042
     Dates: start: 20120531
  2. VESICARE [Concomitant]
  3. TRAMADOL HCL [Concomitant]
  4. CLONAZEPAM [Concomitant]
  5. MELOXICAM [Concomitant]
  6. FOLIC ACID [Concomitant]
  7. METHOTREXATE [Concomitant]
  8. HYDROCODONE [Concomitant]
  9. LIDODERM PATCH [Concomitant]

REACTIONS (6)
  - Flushing [Unknown]
  - Nausea [Unknown]
  - Headache [Unknown]
  - Pain [Unknown]
  - Nasopharyngitis [Unknown]
  - Hyperhidrosis [Unknown]
